FAERS Safety Report 5772646-X (Version None)
Quarter: 2008Q2

REPORT INFORMATION
  Report Type: 
  Country: None (occurrence: None)
  Receive Date: 20080613
  Receipt Date: 20080520
  Transmission Date: 20081010
  Serious: No
  Sender: FDA-Public Use
  Company Number: US-BOEHRINGER INGELHEIM GMBH, GERMANY-2008-BP-07918BP

PATIENT
  Sex: Male

DRUGS (3)
  1. ZANTAC [Suspect]
     Indication: DYSPEPSIA
     Route: 048
     Dates: start: 20080501, end: 20080501
  2. ZANTAC [Suspect]
     Indication: STOMACH DISCOMFORT
  3. NEXIUM [Concomitant]

REACTIONS (1)
  - NAUSEA [None]
